FAERS Safety Report 20616339 (Version 2)
Quarter: 2022Q2

REPORT INFORMATION
  Report Type: Spontaneous
  Country: JP (occurrence: JP)
  Receive Date: 20220321
  Receipt Date: 20220401
  Transmission Date: 20220720
  Serious: Yes (Other)
  Sender: FDA-Public Use
  Company Number: JP-JNJJAKJPN-J22018556

PATIENT

DRUGS (1)
  1. SIMPONI [Suspect]
     Active Substance: GOLIMUMAB
     Indication: Rheumatoid arthritis
     Dosage: DOSE UNKNOWN
     Route: 058

REACTIONS (23)
  - Gastric cancer [Unknown]
  - Breast cancer [Unknown]
  - Colon cancer [Unknown]
  - Lymphoma [Unknown]
  - Rectal cancer [Unknown]
  - Cervix carcinoma [Unknown]
  - Pneumonia [Unknown]
  - Pneumocystis jirovecii pneumonia [Unknown]
  - Herpes zoster [Unknown]
  - Sepsis [Unknown]
  - Organising pneumonia [Unknown]
  - Interstitial lung disease [Unknown]
  - Duodenal ulcer [Unknown]
  - Gastric ulcer haemorrhage [Unknown]
  - Subarachnoid haemorrhage [Unknown]
  - Cerebral infarction [Unknown]
  - Cardiac failure [Unknown]
  - Acute kidney injury [Unknown]
  - Uterine leiomyoma [Unknown]
  - Haemorrhoids [Unknown]
  - Pemphigus [Unknown]
  - Spinal compression fracture [Unknown]
  - Cataract [Unknown]
